FAERS Safety Report 7805187-6 (Version None)
Quarter: 2011Q4

REPORT INFORMATION
  Report Type: 
  Country: None (occurrence: None)
  Receive Date: 20111010
  Receipt Date: 20111005
  Transmission Date: 20120403
  Serious: Yes (Death, Life-Threatening, Disabling, Other)
  Sender: FDA-Public Use
  Company Number: ES-ASTRAZENECA-2011SE58421

PATIENT
  Age: 25090 Day
  Sex: Male

DRUGS (12)
  1. PLAVIX [Suspect]
     Route: 048
     Dates: start: 20110616, end: 20110624
  2. INSULIN LEVEMIR [Concomitant]
     Indication: DIABETES MELLITUS
     Route: 058
  3. BISOPROLOL [Concomitant]
     Indication: CORONARY ARTERY DISEASE
     Route: 048
  4. SIMVASTATIN [Concomitant]
     Indication: DYSLIPIDAEMIA
     Route: 048
  5. AMLODIPINE [Concomitant]
     Indication: CORONARY ARTERY DISEASE
     Route: 048
     Dates: start: 20110520
  6. CLOPIDOGREL [Concomitant]
     Indication: ANTIPLATELET THERAPY
     Dates: start: 20110516
  7. NITROGLYCERIN [Concomitant]
     Indication: CORONARY ARTERY DISEASE
     Route: 058
  8. ENALAPRIL MALEATE [Concomitant]
     Indication: HYPERTENSION
     Route: 048
  9. RANITIDINE HCL [Concomitant]
     Indication: PROPHYLAXIS AGAINST GASTROINTESTINAL ULCER
     Route: 048
  10. ASPIRIN [Concomitant]
     Route: 048
  11. INSULIN APIDRA [Concomitant]
     Indication: DIABETES MELLITUS
     Route: 058
  12. PLAVIX [Suspect]
     Indication: CORONARY ARTERY DISEASE
     Route: 048
     Dates: start: 20110521, end: 20110614

REACTIONS (1)
  - ACUTE MYOCARDIAL INFARCTION [None]
